FAERS Safety Report 5142848-4 (Version None)
Quarter: 2006Q4

REPORT INFORMATION
  Report Type: 
  Country: None (occurrence: None)
  Receive Date: 20061030
  Receipt Date: 20061018
  Transmission Date: 20070319
  Serious: Yes (Hospitalization)
  Sender: FDA-Public Use
  Company Number: 2006BI013598

PATIENT
  Age: 42 Year
  Sex: Male

DRUGS (2)
  1. AVONEX [Suspect]
     Indication: MULTIPLE SCLEROSIS
     Dosage: 30 UG;QW;IM
     Route: 030
     Dates: start: 19980501, end: 20030801
  2. AVONEX [Suspect]
     Indication: MULTIPLE SCLEROSIS
     Dosage: 30 UG;QW;IM
     Route: 030
     Dates: start: 20030801

REACTIONS (7)
  - BALANCE DISORDER [None]
  - FALL [None]
  - FULL BLOOD COUNT DECREASED [None]
  - IMMUNE SYSTEM DISORDER [None]
  - NERVOUS SYSTEM DISORDER [None]
  - PULMONARY THROMBOSIS [None]
  - THORACIC VERTEBRAL FRACTURE [None]
